FAERS Safety Report 8559734-X (Version None)
Quarter: 2012Q3

REPORT INFORMATION
  Report Type: 
  Country: None (occurrence: None)
  Receive Date: 20120802
  Receipt Date: 20120725
  Transmission Date: 20120928
  Serious: Yes (Other)
  Sender: FDA-Public Use
  Company Number: US-PFIZER INC-2011189550

PATIENT
  Age: 57 Year
  Sex: Male

DRUGS (3)
  1. MORPHINE SUL HYT [Suspect]
     Indication: SCOLIOSIS
     Dosage: UNK
  2. OXYCONTIN [Suspect]
     Indication: SCOLIOSIS
     Dosage: UNK
  3. XANAX [Suspect]
     Indication: SCOLIOSIS
     Dosage: UNK

REACTIONS (2)
  - DRUG DEPENDENCE [None]
  - INTENTIONAL DRUG MISUSE [None]
